FAERS Safety Report 8188812-2 (Version None)
Quarter: 2012Q1

REPORT INFORMATION
  Report Type: 
  Country: None (occurrence: None)
  Receive Date: 20120306
  Receipt Date: 20120221
  Transmission Date: 20120608
  Serious: Yes (Hospitalization, Other)
  Sender: FDA-Public Use
  Company Number: US-WATSON-2012-03600

PATIENT
  Age: 69 Year
  Sex: Female

DRUGS (1)
  1. PREDNISONE TAB [Suspect]
     Indication: TEMPORAL ARTERITIS
     Dosage: X 10 WEEKS PRIOR TO HOSPITALIZATION
     Route: 065

REACTIONS (5)
  - RED BLOOD CELL SEDIMENTATION RATE INCREASED [None]
  - ORAL CANDIDIASIS [None]
  - HERPES ZOSTER [None]
  - C-REACTIVE PROTEIN INCREASED [None]
  - PNEUMOCYSTIS JIROVECI PNEUMONIA [None]
